FAERS Safety Report 23217811 (Version 1)
Quarter: 2023Q4

REPORT INFORMATION
  Report Type: Report from Study
  Country: IT (occurrence: IT)
  Receive Date: 20231122
  Receipt Date: 20231122
  Transmission Date: 20240109
  Serious: Yes (Other)
  Sender: FDA-Public Use
  Company Number: IT-MYLANLABS-2023M1123771

PATIENT
  Sex: Female

DRUGS (1)
  1. DESOGESTREL\ETHINYL ESTRADIOL [Suspect]
     Active Substance: DESOGESTREL\ETHINYL ESTRADIOL
     Indication: Hormone replacement therapy
     Dosage: UNK; ETHINYLESTRADIOL 20UG PLUS DESOGESTREL
     Route: 048

REACTIONS (2)
  - Blood glucose abnormal [Unknown]
  - Impaired fasting glucose [Unknown]
